FAERS Safety Report 5680567-6 (Version None)
Quarter: 2008Q1

REPORT INFORMATION
  Report Type: 
  Country: None (occurrence: None)
  Receive Date: 20080326
  Receipt Date: 20080321
  Transmission Date: 20080703
  Serious: Yes (Life-Threatening)
  Sender: FDA-Public Use
  Company Number: ES-JNJFOC-20080305082

PATIENT
  Age: 78 Year
  Sex: Male

DRUGS (6)
  1. TAVANIC [Suspect]
     Indication: INTERVERTEBRAL DISCITIS
     Route: 048
  2. RIFAMPICIN [Suspect]
     Indication: INTERVERTEBRAL DISCITIS
     Route: 048
  3. PRAVASTATIN [Concomitant]
     Indication: HYPERLIPIDAEMIA
     Route: 048
  4. ROYEN [Concomitant]
     Indication: RENAL FAILURE CHRONIC
     Route: 048
  5. EPOETIN ALFA [Concomitant]
     Indication: RENAL FAILURE CHRONIC
     Route: 042
  6. ZYLORIC [Concomitant]
     Indication: HYPERURICAEMIA
     Route: 048

REACTIONS (2)
  - DRUG PRESCRIBING ERROR [None]
  - ENCEPHALOPATHY [None]
